FAERS Safety Report 6612136-5 (Version None)
Quarter: 2010Q1

REPORT INFORMATION
  Report Type: 
  Country: None (occurrence: None)
  Receive Date: 20100302
  Receipt Date: 20100302
  Transmission Date: 20100710
  Serious: Yes (Other)
  Sender: FDA-Public Use
  Company Number: None

PATIENT
  Age: 59 Year
  Sex: Female
  Weight: 74.8435 kg

DRUGS (1)
  1. TRILIPIX [Suspect]
     Indication: HIGH DENSITY LIPOPROTEIN
     Dosage: 1 PER DAY
     Dates: start: 20091210, end: 20100225

REACTIONS (9)
  - FEELING ABNORMAL [None]
  - HEADACHE [None]
  - HYPERHIDROSIS [None]
  - MEMORY IMPAIRMENT [None]
  - MENTAL STATUS CHANGES [None]
  - MYALGIA [None]
  - POLLAKIURIA [None]
  - STOMATITIS [None]
  - URINARY TRACT INFECTION [None]
